FAERS Safety Report 11474854 (Version 1)
Quarter: 2015Q3

REPORT INFORMATION
  Report Type: Spontaneous
  Country: US (occurrence: None)
  Receive Date: 20150908
  Receipt Date: 20150908
  Transmission Date: 20151125
  Serious: Yes (Hospitalization)
  Sender: FDA-Public Use
  Company Number: None

PATIENT
  Age: 20 Year
  Sex: Female
  Weight: 87.54 kg

DRUGS (1)
  1. MIRENA [Suspect]
     Active Substance: LEVONORGESTREL
     Indication: CONTRACEPTION
     Route: 067

REACTIONS (18)
  - Cyst rupture [None]
  - Panic attack [None]
  - Haemorrhage [None]
  - Mood swings [None]
  - Economic problem [None]
  - Pain [None]
  - Amenorrhoea [None]
  - Migraine [None]
  - Paraesthesia [None]
  - Alopecia [None]
  - Tinnitus [None]
  - Anxiety [None]
  - Feeling abnormal [None]
  - Abdominal pain [None]
  - Muscle spasms [None]
  - Food craving [None]
  - Weight increased [None]
  - Device dislocation [None]
